FAERS Safety Report 5879025-5 (Version None)
Quarter: 2008Q3

REPORT INFORMATION
  Report Type: 
  Country: None (occurrence: None)
  Receive Date: 20080912
  Receipt Date: 20080905
  Transmission Date: 20090109
  Serious: Yes (Hospitalization, Other)
  Sender: FDA-Public Use
  Company Number: PHBS2005JP07233

PATIENT
  Sex: Female

DRUGS (7)
  1. STI571/CGP57148B T35717+CAPS [Suspect]
     Indication: GASTROINTESTINAL STROMAL TUMOUR
     Dosage: 400 MG/DAILY
     Route: 048
     Dates: start: 20050310, end: 20050317
  2. STI571/CGP57148B T35717+CAPS [Suspect]
     Dosage: 100 MG/DAILY
     Route: 048
     Dates: start: 20050101, end: 20050101
  3. STI571/CGP57148B T35717+CAPS [Suspect]
     Dosage: 400 MG/DAILY
     Route: 048
     Dates: start: 20050324, end: 20050331
  4. STI571/CGP57148B T35717+CAPS [Suspect]
     Dosage: 400 MG/DAILY
     Route: 048
     Dates: start: 20050411, end: 20050421
  5. STI571/CGP57148B T35717+CAPS [Suspect]
     Dosage: 400 MG/DAILY
     Route: 048
     Dates: start: 20050511, end: 20070121
  6. STI571/CGP57148B T35717+CAPS [Suspect]
     Dosage: UNK
     Dates: start: 20070122
  7. PREDONINE [Concomitant]
     Indication: MYASTHENIA GRAVIS
     Dosage: 8 MG, UNK
     Route: 048
     Dates: start: 20050310

REACTIONS (5)
  - ANAEMIA [None]
  - GENERALISED OEDEMA [None]
  - HAEMATURIA [None]
  - NAUSEA [None]
  - PROTEINURIA [None]
